FAERS Safety Report 16435856 (Version 1)
Quarter: 2019Q2

REPORT INFORMATION
  Report Type: Report from Study
  Country: US (occurrence: US)
  Receive Date: 20190614
  Receipt Date: 20190614
  Transmission Date: 20190711
  Serious: Yes (Hospitalization, Disabling, Other)
  Sender: FDA-Public Use
  Company Number: US-009507513-1906USA002165

PATIENT
  Sex: Female

DRUGS (7)
  1. GABAPENTIN. [Suspect]
     Active Substance: GABAPENTIN
     Indication: PAIN
     Dosage: UNK
  2. BETAMETHASONE DIPROPIONATE (+) CLOTRIMAZOLE (+) GENTAMICIN SULFATE [Suspect]
     Active Substance: BETAMETHASONE DIPROPIONATE\CLOTRIMAZOLE\GENTAMICIN SULFATE
     Indication: VAGINAL INFECTION
  3. LOTRISONE [Suspect]
     Active Substance: BETAMETHASONE DIPROPIONATE\CLOTRIMAZOLE
     Indication: VAGINAL INFECTION
  4. BETAMETHASONE DIPROPIONATE (+) CLOTRIMAZOLE (+) GENTAMICIN SULFATE [Suspect]
     Active Substance: BETAMETHASONE DIPROPIONATE\CLOTRIMAZOLE\GENTAMICIN SULFATE
     Indication: FUNGAL INFECTION
     Dosage: UNK
     Route: 067
     Dates: end: 201905
  5. LOTRISONE [Suspect]
     Active Substance: BETAMETHASONE DIPROPIONATE\CLOTRIMAZOLE
     Indication: FUNGAL INFECTION
     Dosage: UNK
     Route: 067
     Dates: end: 201905
  6. CIPRO [Suspect]
     Active Substance: CIPROFLOXACIN HYDROCHLORIDE
     Indication: VAGINAL INFECTION
     Dosage: UNK
  7. INSULIN [Suspect]
     Active Substance: INSULIN NOS
     Dosage: UNK

REACTIONS (17)
  - Vulvovaginal swelling [Not Recovered/Not Resolved]
  - Vulvovaginal pain [Unknown]
  - Musculoskeletal disorder [Not Recovered/Not Resolved]
  - Renal disorder [Not Recovered/Not Resolved]
  - Bladder irritation [Not Recovered/Not Resolved]
  - Gait inability [Not Recovered/Not Resolved]
  - Product use in unapproved indication [Unknown]
  - Cerebrovascular accident [Unknown]
  - Diabetes mellitus [Not Recovered/Not Resolved]
  - Product dose omission [Unknown]
  - Cerebral thrombosis [Unknown]
  - Incorrect route of product administration [Unknown]
  - Vulvovaginal adhesion [Unknown]
  - Contrast media allergy [Unknown]
  - Seizure [Unknown]
  - Feeling abnormal [Not Recovered/Not Resolved]
  - Exostosis [Recovered/Resolved]

NARRATIVE: CASE EVENT DATE: 2011
